FAERS Safety Report 23734282 (Version 1)
Quarter: 2024Q2

REPORT INFORMATION
  Report Type: Report from Study
  Country: US (occurrence: US)
  Receive Date: 20240412
  Receipt Date: 20240412
  Transmission Date: 20240716
  Serious: No
  Sender: FDA-Public Use
  Company Number: US-ACADIA PHARMACEUTICALS INC.-ACA-2024-PIM-001370

PATIENT
  Sex: Male

DRUGS (12)
  1. NUPLAZID [Suspect]
     Active Substance: PIMAVANSERIN TARTRATE
     Indication: Parkinson^s disease
     Dosage: 34 MILLIGRAM, QD
     Route: 048
     Dates: start: 202303
  2. MIRTAZAPINE [Concomitant]
     Active Substance: MIRTAZAPINE
  3. RAMELTEON [Concomitant]
     Active Substance: RAMELTEON
  4. VITAMIN C [Concomitant]
     Active Substance: ASCORBIC ACID
  5. CARBIDOPA\LEVODOPA [Concomitant]
     Active Substance: CARBIDOPA\LEVODOPA
  6. DONEPEZIL HYDROCHLORIDE [Concomitant]
     Active Substance: DONEPEZIL HYDROCHLORIDE
  7. ESCITALOPRAM OXALATE [Concomitant]
     Active Substance: ESCITALOPRAM OXALATE
  8. QUETIAPINE FUMARATE [Concomitant]
     Active Substance: QUETIAPINE FUMARATE
  9. GABAPENTIN [Concomitant]
     Active Substance: GABAPENTIN
  10. CLONAZEPAM [Concomitant]
     Active Substance: CLONAZEPAM
  11. TEMAZEPAM [Concomitant]
     Active Substance: TEMAZEPAM
  12. VITAMIN D2 [Concomitant]
     Active Substance: ERGOCALCIFEROL

REACTIONS (1)
  - Hallucination [Unknown]
